FAERS Safety Report 9204908 (Version 1)
Quarter: 2013Q2

REPORT INFORMATION
  Report Type: Spontaneous
  Country: US (occurrence: None)
  Receive Date: 20130401
  Receipt Date: 20130401
  Transmission Date: 20140414
  Serious: Yes (Hospitalization)
  Sender: FDA-Public Use
  Company Number: None

PATIENT
  Age: 2 Year
  Sex: Male
  Weight: 12 kg

DRUGS (5)
  1. DOXORUBICIN HYDROCHLORIDE [Suspect]
  2. DEXAMETHASONE [Suspect]
  3. ONCASPAR [Suspect]
  4. METHOTREXATE [Suspect]
  5. VINCRISTINE SULFATE [Suspect]

REACTIONS (10)
  - Febrile neutropenia [None]
  - Respiratory syncytial virus test positive [None]
  - Capnocytophaga test positive [None]
  - Fungal infection [None]
  - Lung infection [None]
  - Body height decreased [None]
  - Osteonecrosis [None]
  - Osteomyelitis [None]
  - Post procedural complication [None]
  - Posture abnormal [None]
